FAERS Safety Report 14830188 (Version 3)
Quarter: 2020Q4

REPORT INFORMATION
  Report Type: Spontaneous
  Country: AT (occurrence: AT)
  Receive Date: 20180430
  Receipt Date: 20201021
  Transmission Date: 20210113
  Serious: Yes (Death)
  Sender: FDA-Public Use
  Company Number: AT-ALLERGAN-1823550US

PATIENT

DRUGS (1)
  1. DALBAVANCIN HCL UNK [Suspect]
     Active Substance: DALBAVANCIN HYDROCHLORIDE
     Indication: ENDOCARDITIS
     Dosage: 1000 MG, SINGLE

REACTIONS (2)
  - Post procedural complication [Fatal]
  - Off label use [Unknown]
